FAERS Safety Report 4471337-5 (Version None)
Quarter: 2004Q4

REPORT INFORMATION
  Report Type: 
  Country: None (occurrence: None)
  Receive Date: 20041006
  Receipt Date: 20040922
  Transmission Date: 20050328
  Serious: Yes (Hospitalization)
  Sender: FDA-Public Use
  Company Number: 8942

PATIENT
  Age: 56 Year
  Sex: Male

DRUGS (11)
  1. LEUCOVORIN CALCIUM [Suspect]
     Indication: RECTAL CANCER
     Dosage: 1 NA PER_CYCLE
     Dates: start: 20031210, end: 20031221
  2. FLUOROURACIL [Suspect]
     Indication: RECTAL CANCER
     Dosage: 1 NA PER_CYCLE
     Dates: start: 20031210, end: 20031231
  3. ASPIRIN [Concomitant]
  4. APROVAL [Concomitant]
  5. ZYLORIC [Concomitant]
  6. REMERON [Concomitant]
  7. VITARUBIN [Concomitant]
  8. FOLIC ACID [Concomitant]
  9. SERETIDE [Concomitant]
  10. FLIXOTIDE [Concomitant]
  11. CAMPTOSAR [Suspect]
     Indication: RECTAL CANCER
     Dosage: 1NAPER CYCLE
     Dates: start: 20031210, end: 20031231

REACTIONS (12)
  - ABDOMINAL PAIN [None]
  - ALCOHOLIC LIVER DISEASE [None]
  - BLOOD CREATININE INCREASED [None]
  - C-REACTIVE PROTEIN INCREASED [None]
  - DIARRHOEA [None]
  - FALL [None]
  - FATIGUE [None]
  - GENERAL PHYSICAL HEALTH DETERIORATION [None]
  - HYPOKALAEMIA [None]
  - POST PROCEDURAL COMPLICATION [None]
  - TACHYCARDIA [None]
  - VOMITING [None]
